FAERS Safety Report 8079894-7 (Version None)
Quarter: 2012Q1

REPORT INFORMATION
  Report Type: 
  Country: None (occurrence: None)
  Receive Date: 20120124
  Receipt Date: 20120112
  Transmission Date: 20120608
  Serious: Yes (Other)
  Sender: FDA-Public Use
  Company Number: 2012MA000540

PATIENT
  Age: 52 Year
  Sex: Female
  Weight: 63.5036 kg

DRUGS (5)
  1. ULTRAM [Concomitant]
  2. KLONOPIN [Concomitant]
  3. GABAPENTIN [Suspect]
     Indication: FIBROMYALGIA
     Dosage: 100 MG;TID
  4. LYRICA [Suspect]
     Indication: FIBROMYALGIA
     Dosage: 50 MG,TID,PO
     Route: 048
  5. NAPROSYN [Suspect]
     Indication: FIBROMYALGIA

REACTIONS (8)
  - JOINT RANGE OF MOTION DECREASED [None]
  - SCAR [None]
  - OEDEMA PERIPHERAL [None]
  - ARTHRALGIA [None]
  - NARCOLEPSY [None]
  - ABDOMINAL DISCOMFORT [None]
  - BLISTER [None]
  - PAIN IN EXTREMITY [None]
